FAERS Safety Report 9750163 (Version 1)
Quarter: 2013Q4

REPORT INFORMATION
  Report Type: Spontaneous
  Country: FR (occurrence: FR)
  Receive Date: 20131212
  Receipt Date: 20131212
  Transmission Date: 20140711
  Serious: Yes (Hospitalization)
  Sender: FDA-Public Use
  Company Number: PHHY2013FR145648

PATIENT
  Age: 71 Year
  Sex: Female

DRUGS (1)
  1. TEGRETOL [Suspect]
     Indication: EPILEPSY
     Dosage: 1 DF, BID
     Route: 048
     Dates: start: 20130923, end: 20131015

REACTIONS (1)
  - Autoimmune haemolytic anaemia [Recovering/Resolving]
